FAERS Safety Report 8998738 (Version 1)
Quarter: 2013Q1

REPORT INFORMATION
  Report Type: Spontaneous
  Country: US (occurrence: US)
  Receive Date: 20130103
  Receipt Date: 20130103
  Transmission Date: 20140127
  Serious: No
  Sender: FDA-Public Use
  Company Number: US-PFIZER INC-2013000292

PATIENT
  Age: 49 Year
  Sex: Male

DRUGS (1)
  1. NORVASC [Suspect]
     Indication: HYPERTENSION
     Dosage: UNK
     Dates: start: 201207

REACTIONS (6)
  - Influenza [Unknown]
  - Pyrexia [Unknown]
  - Vomiting [Unknown]
  - Dyspnoea [Unknown]
  - Vomiting [Unknown]
  - Cough [Unknown]
